FAERS Safety Report 4295803-0 (Version None)
Quarter: 2004Q1

REPORT INFORMATION
  Report Type: 
  Country: None (occurrence: None)
  Receive Date: 20040216
  Receipt Date: 20031106
  Transmission Date: 20041129
  Serious: No
  Sender: FDA-Public Use
  Company Number: US-GLAXOSMITHKLINE-A0438904A

PATIENT
  Age: 22 Year
  Sex: Female
  Weight: 52.3 kg

DRUGS (3)
  1. LAMICTAL [Suspect]
     Dosage: 100MG PER DAY
     Route: 048
     Dates: start: 20030924, end: 20031106
  2. NEURONTIN [Concomitant]
     Dosage: 30MG VARIABLE DOSE
     Route: 065
     Dates: start: 20030301
  3. EFFEXOR [Concomitant]
     Dosage: 75MG PER DAY
     Route: 065
     Dates: start: 20030601

REACTIONS (3)
  - HERPES SIMPLEX [None]
  - MOUTH ULCERATION [None]
  - VAGINITIS [None]
